FAERS Safety Report 8948087 (Version 2)
Quarter: 2012Q4

REPORT INFORMATION
  Report Type: 
  Country: CA (occurrence: CA)
  Receive Date: 20121204
  Receipt Date: 20121214
  Transmission Date: 20130627
  Serious: Yes (Other)
  Sender: FDA-Public Use
  Company Number: CA-GLAXOSMITHKLINE-A1002747A

PATIENT
  Age: 50 Year
  Sex: Female

DRUGS (5)
  1. VALTREX [Suspect]
     Indication: HERPES ZOSTER
     Route: 065
  2. ACYCLOVIR [Suspect]
     Indication: HERPES ZOSTER
     Dosage: 800MG Unknown
     Route: 065
     Dates: start: 20121113
  3. SYNTHROID [Concomitant]
     Indication: HYPOTHYROIDISM
     Dosage: .88MG Unknown
     Route: 065
  4. STATEX [Concomitant]
     Indication: HERPES ZOSTER
     Route: 065
  5. ACTONEL [Concomitant]
     Indication: OSTEOPOROSIS

REACTIONS (1)
  - Rectal haemorrhage [Recovered/Resolved]
